FAERS Safety Report 24371485 (Version 2)
Quarter: 2024Q4

REPORT INFORMATION
  Report Type: Spontaneous
  Country: JP (occurrence: JP)
  Receive Date: 20240927
  Receipt Date: 20241001
  Transmission Date: 20250114
  Serious: No
  Sender: UCB
  Company Number: JP-UCBJ-CD202408703UCBPHAPROD

PATIENT
  Age: 87 Year
  Sex: Male

DRUGS (1)
  1. VIMPAT [Suspect]
     Active Substance: LACOSAMIDE
     Indication: Epilepsy
     Dosage: UNK
     Route: 048
     Dates: end: 20240912

REACTIONS (1)
  - Condition aggravated [Unknown]
